FAERS Safety Report 6743354-3 (Version None)
Quarter: 2010Q2

REPORT INFORMATION
  Report Type: 
  Country: None (occurrence: None)
  Receive Date: 20100527
  Receipt Date: 20100519
  Transmission Date: 20101027
  Serious: Yes (Disabling, Other)
  Sender: FDA-Public Use
  Company Number: GB-ABBOTT-10P-167-0643208-00

PATIENT
  Age: 70 Year
  Sex: Male

DRUGS (9)
  1. ERYTHROMYCIN [Suspect]
     Indication: CELLULITIS
     Dosage: 4 X 250 MG FOR 3 DAYS
     Route: 048
  2. WARFARIN SODIUM [Interacting]
     Indication: PULMONARY EMBOLISM
  3. ASPIRIN [Interacting]
     Indication: DRUG USE FOR UNKNOWN INDICATION
  4. CLOPIDOGREL [Interacting]
     Indication: DRUG USE FOR UNKNOWN INDICATION
  5. CLOPIDOGREL [Interacting]
  6. METRONIDAZOLE [Interacting]
     Indication: DRUG USE FOR UNKNOWN INDICATION
     Route: 048
  7. CIPROFLOXACIN [Interacting]
     Indication: DRUG USE FOR UNKNOWN INDICATION
  8. MEROPENEM [Concomitant]
     Route: 051
  9. TEICOPLANIN [Concomitant]
     Route: 030

REACTIONS (3)
  - DRUG INTERACTION [None]
  - HYPHAEMA [None]
  - INTERNATIONAL NORMALISED RATIO INCREASED [None]
